FAERS Safety Report 13742577 (Version 1)
Quarter: 2017Q3

REPORT INFORMATION
  Report Type: Spontaneous
  Country: FR (occurrence: FR)
  Receive Date: 20170711
  Receipt Date: 20170711
  Transmission Date: 20171127
  Serious: Yes (Other)
  Sender: FDA-Public Use
  Company Number: PHHY2011FR49113

PATIENT
  Sex: Female

DRUGS (1)
  1. CARTEOL [Suspect]
     Active Substance: CARTEOLOL
     Indication: GLAUCOMA
     Dosage: 1 GTT, DROP QAM
     Route: 047
     Dates: start: 200301, end: 201107

REACTIONS (5)
  - Exposure during pregnancy [Unknown]
  - Normal newborn [Unknown]
  - Premature labour [Unknown]
  - Visual field defect [Unknown]
  - Cervix disorder [Unknown]
